FAERS Safety Report 18581804 (Version 1)
Quarter: 2020Q4

REPORT INFORMATION
  Report Type: Spontaneous
  Country: US (occurrence: US)
  Receive Date: 20201204
  Receipt Date: 20201204
  Transmission Date: 20210114
  Serious: No
  Sender: FDA-Public Use
  Company Number: None

PATIENT
  Age: 36 Year
  Sex: Male

DRUGS (1)
  1. REMDESIVIR. [Suspect]
     Active Substance: REMDESIVIR
     Indication: COVID-19
     Dosage: ?          OTHER FREQUENCY:LOADING DOSE;?
     Route: 042
     Dates: start: 20201203, end: 20201203

REACTIONS (3)
  - Rash [None]
  - Therapy cessation [None]
  - Infusion related reaction [None]

NARRATIVE: CASE EVENT DATE: 20201203
